FAERS Safety Report 24772712 (Version 1)
Quarter: 2024Q4

REPORT INFORMATION
  Report Type: Spontaneous
  Country: CN (occurrence: CN)
  Receive Date: 20241225
  Receipt Date: 20241225
  Transmission Date: 20250115
  Serious: Yes (Other)
  Sender: SANOFI AVENTIS
  Company Number: CN-SA-2024SA376179

PATIENT
  Age: 63 Year
  Sex: Male
  Weight: 78 kg

DRUGS (2)
  1. CLOPIDOGREL BISULFATE [Suspect]
     Active Substance: CLOPIDOGREL BISULFATE
     Indication: Coronary artery disease
     Dosage: 75 MG, QD
     Route: 048
     Dates: start: 20241126, end: 20241207
  2. ASPIRIN [Suspect]
     Active Substance: ASPIRIN
     Indication: Coronary artery disease
     Dosage: 100 G, QD
     Route: 048
     Dates: start: 20241126, end: 20241211

REACTIONS (2)
  - Ophthalmic vascular thrombosis [Recovering/Resolving]
  - Eye haemorrhage [Recovering/Resolving]

NARRATIVE: CASE EVENT DATE: 20241206
